FAERS Safety Report 13710816 (Version 1)
Quarter: 2017Q3

REPORT INFORMATION
  Report Type: Spontaneous
  Country: US (occurrence: US)
  Receive Date: 20170701
  Receipt Date: 20170701
  Transmission Date: 20171127
  Serious: Yes (Death, Hospitalization)
  Sender: FDA-Public Use
  Company Number: None

PATIENT
  Age: 74 Year
  Sex: Female
  Weight: 85.4 kg

DRUGS (3)
  1. CARBOPLATIN. [Suspect]
     Active Substance: CARBOPLATIN
     Dates: end: 20170622
  2. TAXOL [Suspect]
     Active Substance: PACLITAXEL
     Dates: end: 20170622
  3. METFORMIN HYDROCHLORIDE. [Suspect]
     Active Substance: METFORMIN HYDROCHLORIDE
     Dates: end: 20170622

REACTIONS (4)
  - Supraventricular tachycardia [None]
  - Atrial fibrillation [None]
  - Failure to thrive [None]
  - Colitis [None]

NARRATIVE: CASE EVENT DATE: 20170624
